FAERS Safety Report 25381591 (Version 2)
Quarter: 2025Q2

REPORT INFORMATION
  Report Type: Spontaneous
  Country: FR (occurrence: FR)
  Receive Date: 20250531
  Receipt Date: 20250602
  Transmission Date: 20250717
  Serious: Yes (Life-Threatening, Hospitalization, Other)
  Sender: ALEXION PHARMACEUTICALS
  Company Number: FR-ASTRAZENECA-202505GLO024932FR

PATIENT
  Age: 47 Year
  Weight: 77 kg

DRUGS (8)
  1. OMEPRAZOLE [Suspect]
     Active Substance: OMEPRAZOLE
     Indication: Prophylaxis
     Dosage: 20 MILLIGRAM, QD
  2. CLOZAPINE [Suspect]
     Active Substance: CLOZAPINE
     Indication: Schizophrenia
     Dosage: 300 MILLIGRAM, QD
  3. CLOZAPINE [Suspect]
     Active Substance: CLOZAPINE
     Dosage: 75 MILLIGRAM, QD
  4. MIRTAZAPINE [Suspect]
     Active Substance: MIRTAZAPINE
     Indication: Depression
     Dosage: 30 MILLIGRAM, QD
  5. AKINETON [Suspect]
     Active Substance: BIPERIDEN HYDROCHLORIDE
     Indication: Parkinsonism
     Dosage: 2 DOSAGE FORM, QD
  6. VALPROATE [Concomitant]
     Active Substance: VALPROIC ACID
  7. ATORVASTATIN [Concomitant]
     Active Substance: ATORVASTATIN
  8. LORAZEPAM [Concomitant]
     Active Substance: LORAZEPAM

REACTIONS (13)
  - Faecaloma [Recovered/Resolved]
  - Gastrointestinal obstruction [Recovered/Resolved with Sequelae]
  - Acute respiratory distress syndrome [Recovered/Resolved]
  - Staphylococcal bacteraemia [Recovered/Resolved]
  - Pseudomonas infection [Recovered/Resolved]
  - Acute kidney injury [Recovered/Resolved]
  - Leriche syndrome [Unknown]
  - Lung disorder [Unknown]
  - Somnolence [Unknown]
  - Mutism [Unknown]
  - Condition aggravated [Unknown]
  - Sleep disorder [Unknown]
  - Psychomotor retardation [Unknown]
